FAERS Safety Report 10445059 (Version 3)
Quarter: 2015Q2

REPORT INFORMATION
  Report Type: Spontaneous
  Country: IT (occurrence: IT)
  Receive Date: 20140910
  Receipt Date: 20150420
  Transmission Date: 20150821
  Serious: Yes (Death, Hospitalization, Other)
  Sender: FDA-Public Use
  Company Number: IT-BRISTOL-MYERS SQUIBB COMPANY-21361779

PATIENT
  Age: 74 Year
  Sex: Male
  Weight: 108 kg

DRUGS (1)
  1. YERVOY [Suspect]
     Active Substance: IPILIMUMAB
     Indication: METASTATIC MALIGNANT MELANOMA
     Dosage: 324 MG, QCYCLE
     Route: 042
     Dates: start: 20140604

REACTIONS (9)
  - Melaena [Fatal]
  - Acute kidney injury [Recovered/Resolved]
  - Anaemia [Unknown]
  - Cardiac failure [Fatal]
  - Malignant neoplasm progression [Fatal]
  - Atrial fibrillation [Fatal]
  - Hyperpyrexia [Unknown]
  - Colitis [Recovering/Resolving]
  - Hypertransaminasaemia [Unknown]

NARRATIVE: CASE EVENT DATE: 20140801
